FAERS Safety Report 24547684 (Version 2)
Quarter: 2024Q4

REPORT INFORMATION
  Report Type: Report from Study
  Country: US (occurrence: US)
  Receive Date: 20241025
  Receipt Date: 20241218
  Transmission Date: 20250115
  Serious: Yes (Hospitalization, Other)
  Sender: NOVARTIS
  Company Number: US-002147023-NVSC2024US203109

PATIENT
  Age: 63 Year
  Sex: Female
  Weight: 64 kg

DRUGS (27)
  1. LAMPRENE [Suspect]
     Active Substance: CLOFAZIMINE
     Indication: Mycobacterium abscessus infection
     Dosage: 100 MG, QD
     Route: 048
     Dates: start: 20200108
  2. LAMPRENE [Suspect]
     Active Substance: CLOFAZIMINE
     Indication: Bronchiectasis
     Dosage: 100 MG, QD
     Route: 048
     Dates: start: 20240929
  3. LAMPRENE [Suspect]
     Active Substance: CLOFAZIMINE
     Indication: Atypical mycobacterial infection
  4. ALPRAZOLAM [Concomitant]
     Active Substance: ALPRAZOLAM
     Indication: Product used for unknown indication
     Dosage: 0.25 MG (NIGHTLY)
     Route: 048
     Dates: start: 20181216
  5. AMITRIPTYLINE [Concomitant]
     Active Substance: AMITRIPTYLINE
     Indication: Product used for unknown indication
     Dosage: 50 MG, QHS
     Route: 048
     Dates: start: 20171105, end: 20201103
  6. AZITHROMYCIN [Concomitant]
     Active Substance: AZITHROMYCIN
     Indication: Product used for unknown indication
     Dosage: 250 MG
     Route: 048
     Dates: start: 20191210, end: 20200311
  7. ERENUMAB [Concomitant]
     Active Substance: ERENUMAB
     Indication: Product used for unknown indication
     Dosage: 140 MG, QMO (EVERY 30 DAYS)
     Route: 058
     Dates: start: 20190829, end: 20201007
  8. ESTRADIOL [Concomitant]
     Active Substance: ESTRADIOL
     Indication: Product used for unknown indication
     Dosage: 2 G, QW2
     Route: 065
     Dates: start: 20170516
  9. FOLIC ACID [Concomitant]
     Active Substance: FOLIC ACID
     Indication: Product used for unknown indication
     Dosage: 1 MG, QD
     Route: 048
     Dates: start: 20200211, end: 20210825
  10. LACTOBACILLUS ACIDOPHILUS [Concomitant]
     Active Substance: LACTOBACILLUS ACIDOPHILUS
     Indication: Product used for unknown indication
     Dosage: 1 DOSAGE FORM, QD
     Route: 048
     Dates: start: 20191010
  11. TEDIZOLID [Concomitant]
     Active Substance: TEDIZOLID
     Indication: Product used for unknown indication
     Dosage: 200 MG, QD
     Route: 048
     Dates: start: 20101019, end: 20200226
  12. XOPENEX [Concomitant]
     Active Substance: LEVALBUTEROL HYDROCHLORIDE
     Indication: Product used for unknown indication
     Dosage: 3 ML (0.63 MG TOTAL)
     Route: 055
     Dates: start: 20190301
  13. XOPENEX [Concomitant]
     Active Substance: LEVALBUTEROL HYDROCHLORIDE
     Dosage: 0.63 MG, BID
     Route: 065
     Dates: start: 20240823
  14. XOPENEX [Concomitant]
     Active Substance: LEVALBUTEROL HYDROCHLORIDE
     Dosage: 0.63 MG, PRN (Q6H)
     Route: 065
  15. MELATONIN [Concomitant]
     Active Substance: MELATONIN
     Indication: Product used for unknown indication
     Dosage: 10 MG, QHS
     Route: 048
     Dates: start: 20191010
  16. LIDOCAINE [Concomitant]
     Active Substance: LIDOCAINE
     Indication: Product used for unknown indication
     Dosage: 5 ML, PATIENT INHALED 1 X PER BRONCHOSCOPY, 2 OCCURENCES
     Route: 055
     Dates: end: 20191007
  17. NADOLOL [Concomitant]
     Active Substance: NADOLOL
     Indication: Hypertension
     Dosage: 160 MG, QHS
     Route: 048
     Dates: start: 20190904, end: 20241022
  18. MINOCYCLINE [Concomitant]
     Active Substance: MINOCYCLINE HYDROCHLORIDE
     Indication: Product used for unknown indication
     Dosage: 100 MG, BID
     Route: 048
     Dates: start: 20200505, end: 20201007
  19. BEDAQUILINE FUMARATE [Concomitant]
     Active Substance: BEDAQUILINE FUMARATE
     Indication: Product used for unknown indication
     Dosage: 200 MG, Q3W
     Route: 065
     Dates: start: 20210309, end: 20241022
  20. PLAQUENIL [Concomitant]
     Active Substance: HYDROXYCHLOROQUINE SULFATE
     Indication: Product used for unknown indication
     Dosage: 200 MG, QD
     Route: 048
     Dates: start: 20210721, end: 20240220
  21. PLAQUENIL [Concomitant]
     Active Substance: HYDROXYCHLOROQUINE SULFATE
     Dosage: 200 MG, QD
     Route: 048
     Dates: start: 20241007, end: 20241022
  22. FLUTICASONE [Concomitant]
     Active Substance: FLUTICASONE
     Indication: Product used for unknown indication
     Dosage: 50 UG, PRN, QD
     Route: 055
     Dates: start: 20210825, end: 20241129
  23. AIMOVIG [Concomitant]
     Active Substance: ERENUMAB\ERENUMAB-AOOE
     Indication: Migraine
     Dosage: 140 MILLIGRAM, Q30D
     Route: 065
     Dates: start: 20190913, end: 20191015
  24. VITAMIN D [Concomitant]
     Active Substance: VITAMIN D NOS
     Indication: Product used for unknown indication
     Dosage: 1 DOSAGE FORM, QD
     Route: 048
     Dates: start: 20220628, end: 20241015
  25. CALCIUM [Concomitant]
     Active Substance: CALCIUM
     Indication: Product used for unknown indication
     Dosage: 1 DOSAGE FORM, QD
     Route: 048
     Dates: start: 20220628, end: 20241015
  26. REGLAN [Concomitant]
     Active Substance: METOCLOPRAMIDE HYDROCHLORIDE
     Indication: Product used for unknown indication
     Dosage: UNK, PRESCRIBED ON 11 OCT 24, UPON DISCHARGE
     Route: 065
  27. ACYCLOVIR [Concomitant]
     Active Substance: ACYCLOVIR
     Indication: Product used for unknown indication
     Dosage: 800 MG, BID, PRN
     Route: 065
     Dates: start: 20170516

REACTIONS (67)
  - Splenic infarction [Recovered/Resolved]
  - Flank pain [Recovered/Resolved]
  - Dehydration [Recovered/Resolved]
  - Nephrolithiasis [Recovered/Resolved]
  - Thrombocytopenia [Not Recovered/Not Resolved]
  - Hypersensitivity pneumonitis [Recovered/Resolved]
  - Cellulitis [Recovering/Resolving]
  - Sjogren^s syndrome [Not Recovered/Not Resolved]
  - Polyneuropathy [Not Recovered/Not Resolved]
  - Neuropathy peripheral [Not Recovered/Not Resolved]
  - Vomiting [Recovered/Resolved]
  - Pleural effusion [Recovered/Resolved]
  - Pyrexia [Recovered/Resolved]
  - Gastroenteritis viral [Recovered/Resolved]
  - Conjunctival pigmentation [Not Recovered/Not Resolved]
  - Food poisoning [Unknown]
  - Hypoproteinaemia [Recovering/Resolving]
  - Anaemia [Recovering/Resolving]
  - Chest pain [Recovered/Resolved]
  - Dyspnoea [Recovered/Resolved]
  - Hypoaesthesia [Unknown]
  - Headache [Recovered/Resolved]
  - Insomnia [Not Recovered/Not Resolved]
  - Vulvovaginal dryness [Unknown]
  - Tinnitus [Not Recovered/Not Resolved]
  - Dry eye [Recovered/Resolved]
  - Fatigue [Not Recovered/Not Resolved]
  - Dizziness [Recovered/Resolved]
  - Decreased appetite [Recovered/Resolved]
  - Nausea [Recovered/Resolved]
  - Diarrhoea [Recovered/Resolved]
  - Rash erythematous [Recovered/Resolved]
  - Pain [Recovered/Resolved]
  - Diarrhoea [Not Recovered/Not Resolved]
  - Dermatosis [Not Recovered/Not Resolved]
  - Alopecia [Not Recovered/Not Resolved]
  - Peripheral sensory neuropathy [Not Recovered/Not Resolved]
  - Haemoptysis [Not Recovered/Not Resolved]
  - Nasal vestibulitis [Not Recovered/Not Resolved]
  - Lymphadenopathy [Unknown]
  - Rhinorrhoea [Not Recovered/Not Resolved]
  - Nasal discomfort [Not Recovered/Not Resolved]
  - Head discomfort [Not Recovered/Not Resolved]
  - Nasal dryness [Not Recovered/Not Resolved]
  - Sinus pain [Not Recovered/Not Resolved]
  - Swelling face [Not Recovered/Not Resolved]
  - Pain in extremity [Unknown]
  - Peripheral swelling [Not Recovered/Not Resolved]
  - Muscle spasms [Not Recovered/Not Resolved]
  - Abdominal discomfort [Recovering/Resolving]
  - Facial pain [Recovered/Resolved]
  - Asthenia [Recovered/Resolved]
  - Gait disturbance [Not Recovered/Not Resolved]
  - Rhinitis allergic [Not Recovered/Not Resolved]
  - Eructation [Not Recovered/Not Resolved]
  - Hypersensitivity [Not Recovered/Not Resolved]
  - Abdominal distension [Not Recovered/Not Resolved]
  - Dyspepsia [Not Recovered/Not Resolved]
  - C-reactive protein increased [Recovered/Resolved]
  - Blood immunoglobulin A decreased [Not Recovered/Not Resolved]
  - Vaginal infection [Recovered/Resolved]
  - Gardnerella test positive [Not Recovered/Not Resolved]
  - Protein total decreased [Recovered/Resolved]
  - Blood albumin decreased [Not Recovered/Not Resolved]
  - Back pain [Not Recovered/Not Resolved]
  - Red cell distribution width increased [Not Recovered/Not Resolved]
  - Temporomandibular pain and dysfunction syndrome [Not Recovered/Not Resolved]

NARRATIVE: CASE EVENT DATE: 20200211
